FAERS Safety Report 8323274-3 (Version None)
Quarter: 2012Q2

REPORT INFORMATION
  Report Type: 
  Country: None (occurrence: None)
  Receive Date: 20120430
  Receipt Date: 20120423
  Transmission Date: 20120825
  Serious: Yes (Hospitalization, Other)
  Sender: FDA-Public Use
  Company Number: PHHY2012CO016294

PATIENT
  Sex: Female

DRUGS (4)
  1. CARVEDILOL [Suspect]
     Indication: HYPERTENSION
     Dosage: 2 DF, (25 MG)
     Dates: start: 20080101
  2. ASPIRIN [Concomitant]
     Dosage: 100 MG, INTERMEDIATE DAY
  3. DIOVAN [Suspect]
     Indication: HYPERTENSION
     Dosage: 1 DF, (40 MG)
     Route: 048
     Dates: start: 20080101
  4. HYDROCHLOROTHIAZIDE [Concomitant]
     Dosage: 25 MG, DAILY

REACTIONS (9)
  - ABDOMINAL PAIN [None]
  - BRADYCARDIA [None]
  - BLOOD BILIRUBIN INCREASED [None]
  - PANCREATITIS [None]
  - NAUSEA [None]
  - CHOLELITHIASIS [None]
  - HEPATIC ENZYME INCREASED [None]
  - VOMITING [None]
  - HYPOTENSION [None]
